FAERS Safety Report 5337687-5 (Version None)
Quarter: 2007Q2

REPORT INFORMATION
  Report Type: 
  Country: None (occurrence: None)
  Receive Date: 20070315
  Receipt Date: 20060404
  Transmission Date: 20071010
  Serious: Yes (Hospitalization)
  Sender: FDA-Public Use
  Company Number: PHEH2006US04517

PATIENT
  Sex: Male

DRUGS (1)
  1. TRILEPTAL [Suspect]
     Indication: PARTIAL SEIZURES
     Dosage: 1800 MG, QD

REACTIONS (2)
  - GRAND MAL CONVULSION [None]
  - HYPONATRAEMIA [None]
